FAERS Safety Report 5473169-8 (Version None)
Quarter: 2007Q3

REPORT INFORMATION
  Report Type: 
  Country: None (occurrence: None)
  Receive Date: 20070927
  Receipt Date: 20070921
  Transmission Date: 20080115
  Serious: Yes (Hospitalization)
  Sender: FDA-Public Use
  Company Number: 2007-04318

PATIENT
  Age: 46 Year
  Sex: Female

DRUGS (1)
  1. TRELSTAR DEPOT [Suspect]
     Indication: ENDOMETRIOSIS
     Dosage: 3 MG, 1 IN 28 D, INTRAMUSCULAR
     Route: 030
     Dates: start: 20070601

REACTIONS (1)
  - THYROID CYST [None]
